FAERS Safety Report 4855090-9 (Version None)
Quarter: 2005Q4

REPORT INFORMATION
  Report Type: 
  Country: None (occurrence: None)
  Receive Date: 20051215
  Receipt Date: 20051205
  Transmission Date: 20060501
  Serious: Yes (Hospitalization, Other)
  Sender: FDA-Public Use
  Company Number: US-ABBOTT-05P-163-0319426-00

PATIENT
  Age: 34 Year
  Sex: Male

DRUGS (19)
  1. VALPROIC ACID [Suspect]
     Indication: EPILEPSY
  2. CISPLATIN [Interacting]
     Indication: CHEMOTHERAPY
     Dates: start: 20020412
  3. CISPLATIN [Interacting]
     Dosage: NOT REPORTED
     Dates: start: 20020625
  4. CISPLATIN [Interacting]
     Dosage: NOT REPORTED
     Dates: start: 20020726
  5. CISPLATIN [Interacting]
     Dosage: NOT REPORTED
     Dates: start: 20020807
  6. CISPLATIN [Interacting]
     Dates: start: 20021017
  7. CISPLATIN [Interacting]
     Dates: start: 20021130
  8. BLEOMYCIN [Concomitant]
     Indication: CHEMOTHERAPY
     Dates: start: 20020412
  9. BLEOMYCIN [Concomitant]
     Dosage: NOT REPORTED
     Dates: start: 20020625
  10. BLEOMYCIN [Concomitant]
     Dosage: NOT REPORTED
     Dates: start: 20020726
  11. BLEOMYCIN [Concomitant]
     Dosage: NOT REPORTED
     Dates: start: 20020807
  12. ETOPOCIDE [Concomitant]
     Indication: CHEMOTHERAPY
     Dates: start: 20020412
  13. ETOPOCIDE [Concomitant]
     Dosage: NOT REPORTED
     Dates: start: 20020625
  14. ETOPOCIDE [Concomitant]
     Dosage: NOT REPORTED
     Dates: start: 20020726
  15. ETOPOCIDE [Concomitant]
     Dosage: NOT REPORTED
     Dates: start: 20020807
  16. PACLITAXEL [Concomitant]
     Indication: CHEMOTHERAPY
     Dates: start: 20021017
  17. PACLITAXEL [Concomitant]
     Dates: start: 20021130
  18. IFOSFAMIDE [Concomitant]
     Indication: CHEMOTHERAPY
     Dates: start: 20021017
  19. IFOSFAMIDE [Concomitant]
     Dates: start: 20021130

REACTIONS (3)
  - DRUG INTERACTION [None]
  - DRUG LEVEL DECREASED [None]
  - GRAND MAL CONVULSION [None]
